FAERS Safety Report 4697021-0 (Version None)
Quarter: 2005Q2

REPORT INFORMATION
  Report Type: 
  Country: None (occurrence: None)
  Receive Date: 20050620
  Receipt Date: 20050412
  Transmission Date: 20051028
  Serious: No
  Sender: FDA-Public Use
  Company Number: US-YAMANOUCHI-YPA20050193

PATIENT
  Age: 69 Year
  Sex: Male
  Weight: 99.7913 kg

DRUGS (11)
  1. VESICARE [Suspect]
     Indication: ENURESIS
     Dosage: 5 MG QD PO
     Route: 048
     Dates: start: 20050401
  2. VESICARE [Suspect]
     Indication: HYPERTONIC BLADDER
     Dosage: 5 MG QD PO
     Route: 048
     Dates: start: 20050401
  3. SYNTHROID [Concomitant]
  4. NIASPAN [Concomitant]
  5. PRAVACHOL [Concomitant]
  6. TRICOR [Concomitant]
  7. AVANDAMET [Concomitant]
  8. WELCHOL [Concomitant]
  9. OMEPRAZOLE [Concomitant]
  10. METOCLOPRAMIDE [Concomitant]
  11. ASPIRIN [Concomitant]

REACTIONS (5)
  - CONSTIPATION [None]
  - FEELING HOT [None]
  - HYPERHIDROSIS [None]
  - URINARY HESITATION [None]
  - URINE OUTPUT DECREASED [None]
